FAERS Safety Report 6793951-4 (Version None)
Quarter: 2010Q2

REPORT INFORMATION
  Report Type: 
  Country: None (occurrence: None)
  Receive Date: 20100624
  Receipt Date: 20070307
  Transmission Date: 20101027
  Serious: No
  Sender: FDA-Public Use
  Company Number: US-PFIZER INC-ENC200700033

PATIENT
  Sex: Male
  Weight: 89 kg

DRUGS (2)
  1. ARGATROBAN [Suspect]
     Indication: PERCUTANEOUS CORONARY INTERVENTION
     Dosage: 25 MCG/KG/MIN
     Route: 042
     Dates: start: 20070309, end: 20070309
  2. PARICALCITOL [Concomitant]

REACTIONS (1)
  - CATHETER SITE HAEMORRHAGE [None]
